FAERS Safety Report 14937366 (Version 2)
Quarter: 2018Q4

REPORT INFORMATION
  Report Type: Spontaneous
  Country: FR (occurrence: FR)
  Receive Date: 20180525
  Receipt Date: 20181129
  Transmission Date: 20190204
  Serious: Yes (Other)
  Sender: FDA-Public Use
  Company Number: FR-MERCK KGAA-2048443

PATIENT
  Age: 55 Year
  Sex: Female
  Weight: 46 kg

DRUGS (1)
  1. EUTHYROX [Suspect]
     Active Substance: LEVOTHYROXINE SODIUM
     Indication: PRODUCT USED FOR UNKNOWN INDICATION

REACTIONS (34)
  - Loss of libido [None]
  - Decreased activity [None]
  - Loss of personal independence in daily activities [None]
  - Emotional distress [None]
  - Decreased interest [None]
  - Asthenia [Recovering/Resolving]
  - Red blood cell count decreased [None]
  - Nervousness [None]
  - Overdose [None]
  - Blood potassium increased [None]
  - Emotional poverty [None]
  - Creatinine renal clearance decreased [None]
  - Somnolence [None]
  - Tri-iodothyronine free decreased [None]
  - Muscle spasms [None]
  - White blood cell count increased [None]
  - Mean cell volume increased [None]
  - Social avoidant behaviour [None]
  - Marital problem [None]
  - Decreased appetite [None]
  - Fatigue [None]
  - Disturbance in attention [None]
  - Weight decreased [None]
  - Myalgia [None]
  - Blood creatinine increased [None]
  - Red blood cell sedimentation rate increased [None]
  - Emotional disorder [None]
  - Migraine [None]
  - Musculoskeletal stiffness [None]
  - Anxiety [None]
  - Impaired driving ability [None]
  - Blood prolactin decreased [None]
  - Morbid thoughts [None]
  - Blood thyroid stimulating hormone decreased [None]

NARRATIVE: CASE EVENT DATE: 20170913
